FAERS Safety Report 11405017 (Version 1)
Quarter: 2015Q3

REPORT INFORMATION
  Report Type: Spontaneous
  Country: CN (occurrence: CN)
  Receive Date: 20150821
  Receipt Date: 20150821
  Transmission Date: 20151125
  Serious: Yes (Hospitalization, Other)
  Sender: FDA-Public Use
  Company Number: CN-BRISTOL-MYERS SQUIBB COMPANY-BMS-2015-054163

PATIENT
  Age: 38 Year
  Sex: Female
  Weight: 42 kg

DRUGS (1)
  1. BARACLUDE [Suspect]
     Active Substance: ENTECAVIR
     Indication: HEPATITIS B
     Dosage: 1 TAB, QD
     Route: 048
     Dates: start: 20141212, end: 20141221

REACTIONS (6)
  - Abdominal distension [Not Recovered/Not Resolved]
  - Vomiting [Unknown]
  - Rash [Recovering/Resolving]
  - Nausea [Not Recovered/Not Resolved]
  - Decreased appetite [Not Recovered/Not Resolved]
  - Pruritus generalised [Recovering/Resolving]

NARRATIVE: CASE EVENT DATE: 20141221
